FAERS Safety Report 18809897 (Version 1)
Quarter: 2021Q1

REPORT INFORMATION
  Report Type: Spontaneous
  Country: CN (occurrence: CN)
  Receive Date: 20210129
  Receipt Date: 20210129
  Transmission Date: 20210419
  Serious: Yes (Other)
  Sender: FDA-Public Use
  Company Number: CN-PFIZER INC-2021058373

PATIENT
  Age: 39 Year
  Sex: Male
  Weight: 78 kg

DRUGS (1)
  1. SOLU?MEDROL [Suspect]
     Active Substance: METHYLPREDNISOLONE SODIUM SUCCINATE
     Indication: EPIGLOTTITIS
     Dosage: 40 MG, 1X/DAY
     Route: 041
     Dates: start: 20210110, end: 20210110

REACTIONS (5)
  - Dizziness [Unknown]
  - Hyperhidrosis [Recovering/Resolving]
  - Blood pressure decreased [Recovering/Resolving]
  - Amaurosis [Unknown]
  - Fatigue [Unknown]

NARRATIVE: CASE EVENT DATE: 20210110
